FAERS Safety Report 4622728-0 (Version None)
Quarter: 2005Q1

REPORT INFORMATION
  Report Type: 
  Country: None (occurrence: None)
  Receive Date: 20050317
  Receipt Date: 20040802
  Transmission Date: 20050727
  Serious: Yes (Hospitalization)
  Sender: FDA-Public Use
  Company Number: PHEH2004US08442

PATIENT
  Age: 76 Year
  Sex: Male

DRUGS (1)
  1. TRILEPTAL [Suspect]
     Indication: CONVULSION

REACTIONS (2)
  - DISORIENTATION [None]
  - RASH [None]
